FAERS Safety Report 10243126 (Version 2)
Quarter: 2014Q2

REPORT INFORMATION
  Report Type: Spontaneous
  Country: US (occurrence: CA)
  Receive Date: 20140618
  Receipt Date: 20140630
  Transmission Date: 20141212
  Serious: Yes (Other)
  Sender: FDA-Public Use
  Company Number: 2014SP003408

PATIENT
  Age: 62 Year
  Sex: Female

DRUGS (10)
  1. METHOTREXATE [Suspect]
     Indication: PRODUCT USED FOR UNKNOWN INDICATION
  2. ENBREL [Suspect]
     Indication: RHEUMATOID ARTHRITIS
     Route: 065
     Dates: start: 20121012
  3. CELEBREX [Concomitant]
  4. CAFFEINE [Concomitant]
  5. CHLORPHENAMINE MALEATE [Concomitant]
  6. PARACETAMOL [Concomitant]
  7. PHENYLEPHRINE HYDROCHLORIDE [Concomitant]
  8. CALCIUM /00778601/ [Concomitant]
  9. LEUCOVORIN /00566701/ [Concomitant]
  10. FOLIC ACID [Concomitant]

REACTIONS (3)
  - Osteoarthritis [Recovering/Resolving]
  - Dry eye [Recovering/Resolving]
  - Faeces soft [Recovering/Resolving]
